FAERS Safety Report 7887703-1 (Version None)
Quarter: 2011Q4

REPORT INFORMATION
  Report Type: 
  Country: None (occurrence: None)
  Receive Date: 20111103
  Receipt Date: 20111028
  Transmission Date: 20120403
  Serious: No
  Sender: FDA-Public Use
  Company Number: US-BIOGENIDEC-2011BI041254

PATIENT
  Age: 37 Year
  Sex: Female

DRUGS (3)
  1. AVONEX [Suspect]
     Indication: MULTIPLE SCLEROSIS
     Route: 030
     Dates: start: 20110904
  2. TYLENOL-500 [Concomitant]
     Indication: PREMEDICATION
     Dates: start: 20110901
  3. IBUPROFEN (ADVIL) [Concomitant]
     Indication: PREMEDICATION
     Dates: start: 20110901

REACTIONS (4)
  - FEELING ABNORMAL [None]
  - INJECTION SITE PAIN [None]
  - INJECTION SITE HAEMATOMA [None]
  - PYREXIA [None]
